FAERS Safety Report 5093718-1 (Version None)
Quarter: 2006Q3

REPORT INFORMATION
  Report Type: 
  Country: None (occurrence: None)
  Receive Date: 20060728
  Receipt Date: 20060406
  Transmission Date: 20061208
  Serious: No
  Sender: FDA-Public Use
  Company Number: 252306

PATIENT
  Age: 57 Year
  Sex: Male
  Weight: 79.4 kg

DRUGS (7)
  1. LEVEMIR [Suspect]
     Indication: DIABETES MELLITUS INSULIN-DEPENDENT
     Dosage: 28 IU, QD, SUBCUTANEOUS
     Route: 058
     Dates: start: 20060123, end: 20060301
  2. NOVOLOG [Suspect]
     Indication: DIABETES MELLITUS INSULIN-DEPENDENT
     Dosage: 17 IU, BID, SUBCUTANEOUS, SEE IMAGE
     Route: 058
     Dates: start: 20020101, end: 20060101
  3. NOVOLOG [Suspect]
     Indication: DIABETES MELLITUS INSULIN-DEPENDENT
     Dosage: 17 IU, BID, SUBCUTANEOUS, SEE IMAGE
     Route: 058
     Dates: start: 20060101
  4. LOZOL [Concomitant]
  5. LISINOPRIL [Concomitant]
  6. ZOCOR [Concomitant]
  7. ASA (ACETYLISALICYLIC ACID) [Concomitant]

REACTIONS (1)
  - BLOOD GLUCOSE INCREASED [None]
